FAERS Safety Report 21737089 (Version 1)
Quarter: 2022Q4

REPORT INFORMATION
  Report Type: Report from Study
  Country: US (occurrence: US)
  Receive Date: 20221216
  Receipt Date: 20221216
  Transmission Date: 20230113
  Serious: Yes (Other)
  Sender: FDA-Public Use
  Company Number: US-UCBSA-2022070231

PATIENT
  Sex: Female

DRUGS (1)
  1. VIMPAT [Suspect]
     Active Substance: LACOSAMIDE
     Indication: Seizure
     Dosage: 200 MILLIGRAM, 1 TABLET, 2X/DAY (BID)

REACTIONS (3)
  - Vancomycin infusion reaction [Unknown]
  - Seizure [Unknown]
  - Convulsive threshold lowered [Unknown]
